FAERS Safety Report 6858541-3 (Version None)
Quarter: 2010Q2

REPORT INFORMATION
  Report Type: 
  Country: None (occurrence: None)
  Receive Date: 20100526
  Receipt Date: 20090508
  Transmission Date: 20101027
  Serious: Yes (Other)
  Sender: FDA-Public Use
  Company Number: 278827

PATIENT
  Age: 54 Year
  Sex: Female
  Weight: 59 kg

DRUGS (4)
  1. ACTIVELLA [Suspect]
     Indication: MENOPAUSE
     Dosage: ORAL
     Route: 048
     Dates: start: 20010101, end: 20020301
  2. PREMARIN [Suspect]
     Indication: MENOPAUSE
     Dates: start: 20010101, end: 20020301
  3. PREMPRO [Suspect]
     Indication: MENOPAUSE
     Dates: start: 20020301, end: 20030301
  4. PROVERA [Suspect]
     Indication: MENOPAUSE
     Dates: start: 20010101, end: 20020301

REACTIONS (1)
  - BREAST CANCER [None]
